FAERS Safety Report 4288505-8 (Version None)
Quarter: 2004Q1

REPORT INFORMATION
  Report Type: 
  Country: None (occurrence: None)
  Receive Date: 20040205
  Receipt Date: 20040115
  Transmission Date: 20041129
  Serious: Yes (Other)
  Sender: FDA-Public Use
  Company Number: US_0401100004

PATIENT
  Age: 77 Year
  Sex: Male
  Weight: 85 kg

DRUGS (17)
  1. SOMATROPIN [Suspect]
     Indication: HORMONE REPLACEMENT THERAPY
     Dosage: 0.1 MG
     Dates: start: 20020101
  2. SOMATROPIN [Suspect]
     Indication: SURGERY
     Dosage: 0.1 MG
     Dates: start: 20020101
  3. ACCETAMINOPHEN [Concomitant]
  4. ACETYLSALICYLIC ACID SRT [Concomitant]
  5. ATENOLOL [Concomitant]
  6. CALCIUM [Concomitant]
  7. CLOPIDOGREL BISULFATE [Concomitant]
  8. HYDROCHLOROTHIAZIDE [Concomitant]
  9. HYDROCORTISONE [Concomitant]
  10. LEVOTHYROXINE SODIUM [Concomitant]
  11. MULTI-VITAMIN [Concomitant]
  12. RABEPRAZOLE SODIUM [Concomitant]
  13. SIMVASTATIN [Concomitant]
  14. TESTOSTERONE CIPIONATE [Concomitant]
  15. TRIMETHOPRIN [Concomitant]
  16. VITAMIN E [Concomitant]
  17. ZOLPIDEM TARTRATE [Concomitant]

REACTIONS (3)
  - ANGIOGRAM [None]
  - GASTRIC ULCER [None]
  - PHARMACEUTICAL PRODUCT COMPLAINT [None]
